FAERS Safety Report 6728179-7 (Version None)
Quarter: 2010Q2

REPORT INFORMATION
  Report Type: 
  Country: None (occurrence: None)
  Receive Date: 20100517
  Receipt Date: 20100506
  Transmission Date: 20101027
  Serious: Yes (Hospitalization)
  Sender: FDA-Public Use
  Company Number: B0649036A

PATIENT
  Age: 67 Year
  Sex: Female

DRUGS (1)
  1. CEFUROXIME [Suspect]
     Indication: SKIN TEST
     Dosage: 500GML SINGLE DOSE
     Route: 065

REACTIONS (1)
  - ANAPHYLACTIC SHOCK [None]
